FAERS Safety Report 23457283 (Version 1)
Quarter: 2024Q1

REPORT INFORMATION
  Report Type: Spontaneous
  Country: None (occurrence: US)
  Receive Date: 20240130
  Receipt Date: 20240130
  Transmission Date: 20240409
  Serious: Yes (Other)
  Sender: FDA-Public Use
  Company Number: US-The Proactiv LLC-2152316

PATIENT
  Sex: Female

DRUGS (7)
  1. COSMETICS [Suspect]
     Active Substance: COSMETICS
     Route: 061
  2. COSMETICS [Suspect]
     Active Substance: COSMETICS
     Route: 061
  3. COSMETICS [Suspect]
     Active Substance: COSMETICS
     Route: 061
  4. COSMETICS [Suspect]
     Active Substance: COSMETICS
     Route: 061
  5. PROACTIV ACNE BODY WASH [Suspect]
     Active Substance: SALICYLIC ACID
     Route: 061
  6. PROACTIV SOLUTION BLACKHEAD DISSOLVING [Suspect]
     Active Substance: SALICYLIC ACID
     Route: 061
  7. PROACTIV MD ADAPALENE ACNE TREATMENT [Concomitant]
     Active Substance: ADAPALENE
     Route: 061

REACTIONS (2)
  - Cardiac failure congestive [Unknown]
  - Drug ineffective [Unknown]
